FAERS Safety Report 9174242 (Version 2)
Quarter: 2014Q2

REPORT INFORMATION
  Report Type: Spontaneous
  Country: MX (occurrence: MX)
  Receive Date: 20130320
  Receipt Date: 20140610
  Transmission Date: 20141212
  Serious: Yes (Death, Hospitalization)
  Sender: FDA-Public Use
  Company Number: PHHY2013MX026860

PATIENT
  Age: 68 Year
  Sex: Male

DRUGS (2)
  1. EXELON PATCH [Suspect]
     Indication: DEMENTIA
     Dosage: 4.6 MG / 24 HRS
     Route: 062
     Dates: start: 20110307
  2. ANTICOAGULANTS [Concomitant]
     Dosage: UNK UKN, UNK
     Dates: start: 2007

REACTIONS (2)
  - Cerebrovascular accident [Fatal]
  - Cerebral infarction [Fatal]
